FAERS Safety Report 16158866 (Version 1)
Quarter: 2019Q2

REPORT INFORMATION
  Report Type: Spontaneous
  Country: US (occurrence: US)
  Receive Date: 20190403
  Receipt Date: 20190403
  Transmission Date: 20190711
  Serious: No
  Sender: FDA-Public Use
  Company Number: None

PATIENT
  Age: 13 Month
  Sex: Female
  Weight: 8.55 kg

DRUGS (1)
  1. INFANTS IBUPROFEN [Suspect]
     Active Substance: IBUPROFEN
     Indication: PYREXIA
     Dosage: ?          QUANTITY:1.25 1.875;?
     Route: 048
     Dates: start: 20190401, end: 20190401

REACTIONS (4)
  - Rash [None]
  - Encephalitis [None]
  - Intentional self-injury [None]
  - Screaming [None]

NARRATIVE: CASE EVENT DATE: 20190401
